FAERS Safety Report 19141790 (Version 1)
Quarter: 2021Q2

REPORT INFORMATION
  Report Type: Spontaneous
  Country: US (occurrence: US)
  Receive Date: 20210415
  Receipt Date: 20210415
  Transmission Date: 20210717
  Serious: No
  Sender: FDA-Public Use
  Company Number: US-EVOKE PHARMA, INC.-2021EVO000014

PATIENT

DRUGS (3)
  1. GIMOTI [Suspect]
     Active Substance: METOCLOPRAMIDE HYDROCHLORIDE
     Indication: IMPAIRED GASTRIC EMPTYING
     Dosage: ONE SPRAY IN ONE NOSTRIL, QID
     Route: 045
     Dates: start: 20210201, end: 202102
  2. ALBUTEROL                          /00139501/ [Concomitant]
     Active Substance: ALBUTEROL
     Indication: PRODUCT USED FOR UNKNOWN INDICATION
     Dosage: UNK
     Route: 055
  3. FAMOTIDINE. [Concomitant]
     Active Substance: FAMOTIDINE
     Indication: PRODUCT USED FOR UNKNOWN INDICATION
     Dosage: 40 MG, QD
     Route: 048

REACTIONS (6)
  - Paranasal sinus discomfort [Unknown]
  - Sinus congestion [Unknown]
  - Sinus pain [Unknown]
  - Ear discomfort [Unknown]
  - Sinus disorder [Unknown]
  - Drug ineffective [Unknown]

NARRATIVE: CASE EVENT DATE: 202102
